FAERS Safety Report 6241507-4 (Version None)
Quarter: 2009Q2

REPORT INFORMATION
  Report Type: 
  Country: None (occurrence: None)
  Receive Date: 20090623
  Receipt Date: 20040324
  Transmission Date: 20091009
  Serious: Yes (Hospitalization)
  Sender: FDA-Public Use
  Company Number: DE-ROCHE-346255

PATIENT
  Sex: Male
  Weight: 87.5 kg

DRUGS (23)
  1. DACLIZUMAB [Suspect]
     Route: 042
     Dates: start: 20030731, end: 20030731
  2. DACLIZUMAB [Suspect]
     Dosage: WEEK-2 VISIT
     Route: 042
     Dates: start: 20030813
  3. DACLIZUMAB [Suspect]
     Route: 042
     Dates: start: 20030828
  4. MYCOPHENOLATE MOFETIL [Suspect]
     Dosage: DRUG REPORTED: MYCOPHENOLAT MOFETIL
     Route: 048
     Dates: end: 20030904
  5. MYCOPHENOLATE MOFETIL [Suspect]
     Route: 048
     Dates: start: 20030916
  6. MYCOPHENOLATE MOFETIL [Suspect]
     Route: 048
     Dates: start: 20031013
  7. MYCOPHENOLATE MOFETIL [Suspect]
     Route: 048
     Dates: start: 20040202
  8. MYCOPHENOLATE MOFETIL [Suspect]
     Route: 048
     Dates: start: 20040731
  9. TACROLIMUS [Suspect]
     Route: 048
     Dates: start: 20030731, end: 20030731
  10. TACROLIMUS [Suspect]
     Route: 048
     Dates: start: 20030801, end: 20030807
  11. TACROLIMUS [Suspect]
     Route: 048
     Dates: start: 20030808, end: 20030810
  12. TACROLIMUS [Suspect]
     Route: 048
     Dates: start: 20030811
  13. PREDNISOLONE [Suspect]
     Route: 042
     Dates: start: 20030731
  14. PREDNISOLONE [Suspect]
     Route: 042
     Dates: start: 20030801
  15. BISOPROLOL [Concomitant]
     Route: 048
     Dates: start: 20030802
  16. FELODIPINE [Concomitant]
     Route: 048
     Dates: start: 20030804
  17. LOPINAVIR [Concomitant]
     Route: 048
     Dates: start: 20030807
  18. PANTOZOL [Concomitant]
     Route: 048
     Dates: start: 20030731
  19. ACETYLSALICYLIC ACID [Concomitant]
     Route: 048
     Dates: start: 20030801
  20. CAPTOPRIL [Concomitant]
     Dosage: DRUG REPORTED: CAPTOPRILE
     Route: 048
     Dates: start: 20030807
  21. PREDNISONE [Suspect]
     Dosage: DRUG REPORTED: PREDNISON
     Route: 048
     Dates: start: 20030802
  22. PREDNISONE [Suspect]
     Route: 048
     Dates: start: 20030818
  23. PREDNISONE [Suspect]
     Route: 048
     Dates: start: 20031118

REACTIONS (1)
  - PNEUMONIA BACTERIAL [None]
